FAERS Safety Report 16598574 (Version 1)
Quarter: 2019Q3

REPORT INFORMATION
  Report Type: Report from Study
  Country: IT (occurrence: IT)
  Receive Date: 20190719
  Receipt Date: 20190719
  Transmission Date: 20191004
  Serious: Yes (Other)
  Sender: FDA-Public Use
  Company Number: IT-MYLANLABS-2019M1067269

PATIENT
  Age: 7 Year
  Sex: Male

DRUGS (4)
  1. MORPHINE [Interacting]
     Active Substance: MORPHINE
     Indication: PAIN
     Dosage: 2 MG/ML WITH A LOCK-OUT TIME OF 20 MINUTES
     Route: 040
  2. KETAMINE [Concomitant]
     Active Substance: KETAMINE
     Indication: PAIN
     Dosage: 2 MG/ML WITH A LOCK-OUT TIME OF 20 MINUTES
     Route: 040
  3. REMIFENTANIL [Interacting]
     Active Substance: REMIFENTANIL
     Indication: PAIN
     Dosage: CONTINUOUS INFUSION
     Route: 050
  4. BACLOFEN. [Suspect]
     Active Substance: BACLOFEN
     Indication: SCOLIOSIS
     Route: 037

REACTIONS (2)
  - Sedation complication [Unknown]
  - Drug interaction [Unknown]
